FAERS Safety Report 7796056-9 (Version None)
Quarter: 2011Q4

REPORT INFORMATION
  Report Type: 
  Country: None (occurrence: None)
  Receive Date: 20111004
  Receipt Date: 20110920
  Transmission Date: 20120403
  Serious: Yes (Hospitalization)
  Sender: FDA-Public Use
  Company Number: HU-BAYER-2011-087896

PATIENT
  Age: 31 Year
  Sex: Male

DRUGS (6)
  1. ASPIRIN PLUS C [Suspect]
     Indication: PYREXIA
     Dosage: UNK
     Route: 048
     Dates: start: 20110815, end: 20110820
  2. ALGOPYRIN [Suspect]
     Indication: PYREXIA
     Dosage: UNK
     Route: 048
     Dates: start: 20110815, end: 20110820
  3. IBUPROFEN [Suspect]
     Indication: MALAISE
  4. ASPIRIN PLUS C [Suspect]
     Indication: MALAISE
  5. ALGOPYRIN [Suspect]
     Indication: MALAISE
  6. IBUPROFEN [Suspect]
     Indication: PYREXIA
     Dosage: UNK
     Route: 048
     Dates: start: 20110815, end: 20110820

REACTIONS (1)
  - STEVENS-JOHNSON SYNDROME [None]
